FAERS Safety Report 6310379-1 (Version None)
Quarter: 2009Q3

REPORT INFORMATION
  Report Type: 
  Country: None (occurrence: None)
  Receive Date: 20090811
  Receipt Date: 20090728
  Transmission Date: 20100115
  Serious: Yes (Death)
  Sender: FDA-Public Use
  Company Number: KV200800101

PATIENT
  Age: 61 Year
  Sex: Female

DRUGS (3)
  1. MORPHINE SULFATE [Suspect]
     Indication: CANCER PAIN
     Dosage: ORAL
     Route: 048
     Dates: start: 20080401, end: 20080429
  2. MORPHINE SULFATE [Suspect]
     Indication: PAIN
     Dosage: ORAL
     Route: 048
     Dates: start: 20080401, end: 20080429
  3. ANTIBIOTICS [Concomitant]

REACTIONS (2)
  - PRODUCT QUALITY ISSUE [None]
  - UNRESPONSIVE TO STIMULI [None]
